FAERS Safety Report 4552836-4 (Version None)
Quarter: 2005Q1

REPORT INFORMATION
  Report Type: 
  Country: None (occurrence: None)
  Receive Date: 20050114
  Receipt Date: 20050104
  Transmission Date: 20050727
  Serious: Yes (Hospitalization)
  Sender: FDA-Public Use
  Company Number: GB-BRISTOL-MYERS SQUIBB COMPANY-12820536

PATIENT
  Age: 79 Year
  Sex: Male

DRUGS (2)
  1. CETUXIMAB [Suspect]
     Indication: COLORECTAL CANCER
     Dosage: MOST RECENT INFUSION ON 22-DEC-04.
     Route: 041
     Dates: start: 20041217
  2. IRINOTECAN [Suspect]
     Indication: COLORECTAL CANCER
     Dosage: MOST RECENT INFUSION ON 17-DEC-04.
     Route: 042
     Dates: start: 20041217

REACTIONS (5)
  - ASTHENIA [None]
  - CONFUSIONAL STATE [None]
  - DEHYDRATION [None]
  - DIARRHOEA [None]
  - MUCOSAL INFLAMMATION [None]
